FAERS Safety Report 8032903-3 (Version None)
Quarter: 2012Q1

REPORT INFORMATION
  Report Type: 
  Country: None (occurrence: None)
  Receive Date: 20120110
  Receipt Date: 20111228
  Transmission Date: 20120608
  Serious: Yes (Other)
  Sender: FDA-Public Use
  Company Number: US-ELI_LILLY_AND_COMPANY-US201005004378

PATIENT
  Sex: Female
  Weight: 59.4 kg

DRUGS (4)
  1. CHEMOTHERAPEUTICS [Concomitant]
     Dosage: UNK
     Dates: start: 20090201
  2. FORTEO [Suspect]
     Indication: OSTEOPOROSIS
     Dosage: 20 UG, QD
     Route: 058
  3. FORTEO [Suspect]
     Dosage: 20 UG, QD
     Route: 058
  4. FORTEO [Suspect]
     Dosage: 20 UG, QD
     Route: 058

REACTIONS (1)
  - THORACIC VERTEBRAL FRACTURE [None]
